FAERS Safety Report 10007438 (Version 2)
Quarter: 2014Q2

REPORT INFORMATION
  Report Type: Report from Study
  Country: US (occurrence: US)
  Receive Date: 20140313
  Receipt Date: 20140430
  Transmission Date: 20141212
  Serious: Yes (Death, Life-Threatening, Hospitalization)
  Sender: FDA-Public Use
  Company Number: US-GLAXOSMITHKLINE-Z0018721A

PATIENT
  Age: 57 Year
  Sex: Female
  Weight: 59.6 kg

DRUGS (2)
  1. GSK2126458 [Suspect]
     Indication: NEOPLASM
     Dosage: .5MG TWICE PER DAY
     Route: 048
     Dates: start: 20121204
  2. GSK1120212 [Suspect]
     Indication: NEOPLASM
     Dosage: 1.5MG PER DAY
     Route: 048
     Dates: start: 20130102

REACTIONS (4)
  - Dehydration [Not Recovered/Not Resolved]
  - Systemic inflammatory response syndrome [Not Recovered/Not Resolved]
  - Renal failure acute [Not Recovered/Not Resolved]
  - Multi-organ failure [Fatal]
